FAERS Safety Report 4609051-5 (Version None)
Quarter: 2005Q2

REPORT INFORMATION
  Report Type: 
  Country: None (occurrence: None)
  Receive Date: 20050228
  Receipt Date: 20040209
  Transmission Date: 20051028
  Serious: Yes (Hospitalization)
  Sender: FDA-Public Use
  Company Number: 1526

PATIENT
  Age: 70 Year

DRUGS (5)
  1. TARGRETIN [Suspect]
     Indication: MYCOSIS FUNGOIDES
     Dosage: 225 MG QD; PO
     Route: 048
     Dates: start: 20040130, end: 20040130
  2. ACITRETIN [Suspect]
     Indication: MYCOSIS FUNGOIDES
     Dosage: 20 MG; PO
     Route: 048
     Dates: end: 20040128
  3. ACITRETIN [Concomitant]
  4. HYDROXYZINE [Concomitant]
  5. PSORALEN [Concomitant]

REACTIONS (4)
  - ABDOMINAL PAIN [None]
  - HEADACHE [None]
  - NAUSEA [None]
  - VOMITING [None]
